FAERS Safety Report 7213109-4 (Version None)
Quarter: 2010Q4

REPORT INFORMATION
  Report Type: 
  Country: None (occurrence: None)
  Receive Date: 20101229
  Receipt Date: 20101213
  Transmission Date: 20110411
  Serious: Yes (Other)
  Sender: FDA-Public Use
  Company Number: SI-ACCORD-007367

PATIENT
  Sex: Male
  Weight: 4 kg

DRUGS (3)
  1. IRBESARTAN [Suspect]
     Dosage: 150.00-MG-2.00PE R-1.0 DAYS / TRANSPLACENTAL
     Route: 064
  2. METHYLDOPA [Suspect]
     Dosage: 250.00-MG-3.00PE R-1.0 DAYS / TRANSPLACENTAL
     Route: 064
  3. LYSINE ACETYLSALICYLIC (LYSINE ACETYLSALICYLIC) [Suspect]
     Dosage: 100.00-MG-1.0 DAYS / TRANSPLACENTAL
     Route: 064

REACTIONS (2)
  - MATERNAL DRUGS AFFECTING FOETUS [None]
  - POLYDACTYLY [None]
